FAERS Safety Report 16574340 (Version 1)
Quarter: 2019Q3

REPORT INFORMATION
  Report Type: Spontaneous
  Country: US (occurrence: US)
  Receive Date: 20190715
  Receipt Date: 20190715
  Transmission Date: 20191004
  Serious: Yes (Other)
  Sender: FDA-Public Use
  Company Number: US-NOVOPROD-647831

PATIENT
  Age: 67 Year
  Sex: Male

DRUGS (1)
  1. OZEMPIC [Suspect]
     Active Substance: SEMAGLUTIDE
     Indication: DIABETES MELLITUS
     Dosage: 0.25 MG, QW
     Route: 058
     Dates: start: 20190125

REACTIONS (6)
  - Nausea [Not Recovered/Not Resolved]
  - Headache [Not Recovered/Not Resolved]
  - Urine flow decreased [Unknown]
  - Vomiting [Recovered/Resolved]
  - Renal impairment [Unknown]
  - Decreased appetite [Not Recovered/Not Resolved]

NARRATIVE: CASE EVENT DATE: 2019
